FAERS Safety Report 8008842-0 (Version None)
Quarter: 2011Q4

REPORT INFORMATION
  Report Type: 
  Country: None (occurrence: None)
  Receive Date: 20111227
  Receipt Date: 20111220
  Transmission Date: 20120403
  Serious: Yes (Hospitalization)
  Sender: FDA-Public Use
  Company Number: DE-BAYER-2011-106875

PATIENT
  Age: 39 Year
  Sex: Female
  Weight: 58 kg

DRUGS (1)
  1. ESTRADIOL VALERATE/DIENOGEST [Suspect]
     Indication: CONTRACEPTION
     Dosage: 1 DF, QD
     Route: 048
     Dates: start: 20111012, end: 20111102

REACTIONS (5)
  - ARRHYTHMIA [None]
  - HYPERVENTILATION [None]
  - HEART RATE INCREASED [None]
  - ANXIETY [None]
  - DYSPNOEA [None]
